FAERS Safety Report 7391672-0 (Version None)
Quarter: 2011Q2

REPORT INFORMATION
  Report Type: 
  Country: None (occurrence: None)
  Receive Date: 20110404
  Receipt Date: 20110330
  Transmission Date: 20111010
  Serious: Yes (Other)
  Sender: FDA-Public Use
  Company Number: GB-PFIZER INC-2011071500

PATIENT
  Age: 63 Year
  Sex: Male
  Weight: 130 kg

DRUGS (3)
  1. AMLODIPINE BESILATE [Suspect]
     Indication: HYPERTENSION
     Dosage: 10 MG, UNK
     Route: 048
     Dates: start: 20110310, end: 20110315
  2. BISOPROLOL [Concomitant]
     Dosage: 2.5 MG, UNK
     Route: 048
  3. FUROSEMIDE [Concomitant]
     Dosage: 40 MG, UNK
     Route: 048

REACTIONS (3)
  - PRODUCT SUBSTITUTION ISSUE [None]
  - CARDIAC FAILURE CONGESTIVE [None]
  - HYPERTENSION [None]
